FAERS Safety Report 5958185-1 (Version None)
Quarter: 2008Q4

REPORT INFORMATION
  Report Type: 
  Country: None (occurrence: None)
  Receive Date: 20081117
  Receipt Date: 20081117
  Transmission Date: 20090506
  Serious: No
  Sender: FDA-Public Use
  Company Number: None

PATIENT
  Age: 60 Year
  Sex: Female
  Weight: 77.1115 kg

DRUGS (1)
  1. TERBINAFINE HYDROCHLORIDE [Suspect]
     Indication: ONYCHOMYCOSIS
     Dosage: 1 A DAY DAILY
     Dates: start: 20080723, end: 20080823

REACTIONS (3)
  - DEPRESSION [None]
  - DYSGEUSIA [None]
  - ORAL PAIN [None]
